FAERS Safety Report 4798850-5 (Version None)
Quarter: 2005Q4

REPORT INFORMATION
  Report Type: 
  Country: None (occurrence: None)
  Receive Date: 20051014
  Receipt Date: 20051004
  Transmission Date: 20060501
  Serious: Yes (Death)
  Sender: FDA-Public Use
  Company Number: US-GLAXOSMITHKLINE-A0576865A

PATIENT
  Age: 45 Year
  Sex: Female

DRUGS (2)
  1. WELLBUTRIN SR [Suspect]
     Indication: SMOKING CESSATION THERAPY
     Dosage: 150MG TWICE PER DAY
     Route: 048
     Dates: start: 20050507
  2. AUGMENTIN '125' [Concomitant]
     Indication: TOOTH INFECTION
     Dates: start: 20050514, end: 20050524

REACTIONS (5)
  - COMPLETED SUICIDE [None]
  - FATIGUE [None]
  - FEAR [None]
  - GUN SHOT WOUND [None]
  - INSOMNIA [None]
